FAERS Safety Report 21366460 (Version 1)
Quarter: 2022Q3

REPORT INFORMATION
  Report Type: Spontaneous
  Country: US (occurrence: US)
  Receive Date: 20220923
  Receipt Date: 20220923
  Transmission Date: 20221027
  Serious: Yes (Other)
  Sender: FDA-Public Use
  Company Number: US-SUN PHARMACEUTICAL INDUSTRIES LTD-2022R1-355444

PATIENT
  Age: 45 Year
  Sex: Female

DRUGS (3)
  1. PREDNISONE [Suspect]
     Active Substance: PREDNISONE
     Indication: Myositis
     Dosage: 30 MILLIGRAM, DAILY
     Route: 065
  2. PREDNISONE [Suspect]
     Active Substance: PREDNISONE
     Dosage: 10 MILLIGRAM, WEEKLY
     Route: 065
  3. AZATHIOPRINE [Suspect]
     Active Substance: AZATHIOPRINE
     Indication: Myositis
     Dosage: 50 MILLIGRAM, BID
     Route: 065

REACTIONS (1)
  - Therapy partial responder [Unknown]
